FAERS Safety Report 5084837-4 (Version None)
Quarter: 2006Q3

REPORT INFORMATION
  Report Type: 
  Country: None (occurrence: None)
  Receive Date: 20060815
  Receipt Date: 20060801
  Transmission Date: 20061208
  Serious: Yes (Death)
  Sender: FDA-Public Use
  Company Number: 111779ISR

PATIENT
  Age: 80 Year
  Sex: Male

DRUGS (4)
  1. RASAGILINE MESYLATE [Suspect]
     Dosage: 1 MILLIGRAM
     Route: 048
     Dates: start: 20051110, end: 20060220
  2. CARBIDOPA AND LEVODOPA [Concomitant]
  3. SEROQUEL [Concomitant]
  4. MELPERONE HYDROCHLORIDE [Concomitant]

REACTIONS (1)
  - DEATH [None]
